FAERS Safety Report 7647215-7 (Version None)
Quarter: 2011Q3

REPORT INFORMATION
  Report Type: 
  Country: None (occurrence: None)
  Receive Date: 20110711
  Receipt Date: 20110321
  Transmission Date: 20111222
  Serious: Yes (Other)
  Sender: FDA-Public Use
  Company Number: IPC2011003-000348

PATIENT

DRUGS (7)
  1. METOCLOPRAMIDE [Suspect]
     Dates: start: 20040101, end: 20101101
  2. METOCLOPRAMIDE [Suspect]
     Dates: start: 20040101, end: 20101101
  3. METOCLOPRAMIDE [Suspect]
     Dates: start: 20040101, end: 20101101
  4. METOCLOPRAMIDE HYDROCHLORIDE [Suspect]
     Dates: start: 20040101, end: 20101101
  5. METOCLOPRAMIDE [Suspect]
     Dates: start: 20040101, end: 20101101
  6. METOCLOPRAMIDE HCL [Suspect]
     Dates: start: 20040101, end: 20101101
  7. METOCLOPRAMIDE [Suspect]
     Dates: start: 20040101, end: 20101101

REACTIONS (5)
  - TARDIVE DYSKINESIA [None]
  - EXTRAPYRAMIDAL DISORDER [None]
  - DYSKINESIA [None]
  - TREMOR [None]
  - PARKINSON'S DISEASE [None]
